FAERS Safety Report 10217665 (Version 2)
Quarter: 2015Q3

REPORT INFORMATION
  Report Type: Spontaneous
  Country: US (occurrence: US)
  Receive Date: 20140604
  Receipt Date: 20150731
  Transmission Date: 20151125
  Serious: No
  Sender: FDA-Public Use
  Company Number: US-GILEAD-2013-0080920

PATIENT
  Sex: Male

DRUGS (1)
  1. VIREAD [Suspect]
     Active Substance: TENOFOVIR DISOPROXIL FUMARATE
     Indication: HEPATITIS B
     Dosage: UNK

REACTIONS (5)
  - Diarrhoea [Unknown]
  - Unevaluable event [Unknown]
  - Dehydration [Unknown]
  - Pain [Unknown]
  - Pruritus [Recovered/Resolved]
